FAERS Safety Report 20003126 (Version 2)
Quarter: 2021Q4

REPORT INFORMATION
  Report Type: Spontaneous
  Country: JP (occurrence: JP)
  Receive Date: 20211027
  Receipt Date: 20211102
  Transmission Date: 20220303
  Serious: Yes (Other)
  Sender: FDA-Public Use
  Company Number: JP-TEVA TAKEDA YAKUHIN-2021-JP-005220J

PATIENT
  Age: 32 Year
  Sex: Male

DRUGS (2)
  1. LANSOPRAZOLE [Suspect]
     Active Substance: LANSOPRAZOLE
     Indication: Adverse drug reaction
     Dosage: DOSAGE IS UNKNOWN
     Route: 048
  2. LANSOPRAZOLE [Suspect]
     Active Substance: LANSOPRAZOLE
     Indication: Prophylaxis

REACTIONS (3)
  - Cytopenia [Unknown]
  - Neutrophil count decreased [Unknown]
  - Product use in unapproved indication [Unknown]
